FAERS Safety Report 5170157-6 (Version None)
Quarter: 2006Q4

REPORT INFORMATION
  Report Type: 
  Country: None (occurrence: None)
  Receive Date: 20061204
  Receipt Date: 20061122
  Transmission Date: 20070319
  Serious: No
  Sender: FDA-Public Use
  Company Number: 230887

PATIENT
  Age: 40 Year
  Sex: Female
  Weight: 81.6 kg

DRUGS (4)
  1. XOLAIR [Suspect]
     Indication: ASTHMA
     Dosage: 375 MG, SUBCUTANEOUS
     Route: 058
     Dates: start: 20060520
  2. PREDNISONE TAB [Concomitant]
  3. ADVAIR DISKUS 100/50 [Concomitant]
  4. FLOVENT [Concomitant]

REACTIONS (2)
  - INJECTION SITE BRUISING [None]
  - WEIGHT INCREASED [None]
